FAERS Safety Report 7888478-2 (Version None)
Quarter: 2011Q4

REPORT INFORMATION
  Report Type: 
  Country: None (occurrence: None)
  Receive Date: 20111101
  Receipt Date: 20111018
  Transmission Date: 20120403
  Serious: Yes (Hospitalization, Other)
  Sender: FDA-Public Use
  Company Number: 2011MA014921

PATIENT
  Age: 15 Year
  Sex: Male
  Weight: 66 kg

DRUGS (4)
  1. VANCOMYCIN [Suspect]
     Indication: PYREXIA
     Dosage: 500 MG;Q6HR;
  2. CEFTAZIDIME [Suspect]
     Indication: PYREXIA
     Dosage: 2 GM;Q8HR
  3. ACYCLOVIR [Suspect]
     Indication: MUCOSAL INFLAMMATION
     Dosage: 1 GM;Q8HR;IV
     Route: 042
  4. ACYCLOVIR [Suspect]
     Indication: HERPES VIRUS INFECTION
     Dosage: 1 GM;Q8HR;IV
     Route: 042

REACTIONS (2)
  - ORAL HERPES [None]
  - RENAL FAILURE ACUTE [None]
